FAERS Safety Report 5880720-2 (Version None)
Quarter: 2008Q3

REPORT INFORMATION
  Report Type: 
  Country: None (occurrence: None)
  Receive Date: 20080912
  Receipt Date: 20080603
  Transmission Date: 20090109
  Serious: No
  Sender: FDA-Public Use
  Company Number: US-ABBOTT-08P-163-0455859-00

PATIENT
  Sex: Female
  Weight: 48.578 kg

DRUGS (7)
  1. HUMIRA [Suspect]
     Indication: RHEUMATOID ARTHRITIS
     Route: 050
     Dates: start: 20060101
  2. LEVOTHYROXINE SODIUM [Concomitant]
     Indication: THYROID DISORDER
     Route: 048
     Dates: start: 20050101
  3. VICODIN [Concomitant]
     Indication: PAIN
     Route: 048
     Dates: start: 20030101
  4. PREGABALIN [Concomitant]
     Indication: ARTHRITIS
     Dosage: UNKNOWN DOSE 1 OR 2 TIMES A DAY
     Route: 048
     Dates: start: 20071201
  5. DULOXETINE HYDROCHLORIDE [Concomitant]
     Indication: ANXIETY
     Route: 048
     Dates: start: 20070101
  6. UNKNOWN DRUG FOR SLEEP [Concomitant]
     Indication: INSOMNIA
     Route: 048
     Dates: start: 20080101
  7. C-PAP [Concomitant]
     Indication: SLEEP APNOEA SYNDROME
     Dosage: AT NIGHT BY A MACHINE
     Dates: start: 20080101

REACTIONS (4)
  - MIGRAINE [None]
  - SLEEP APNOEA SYNDROME [None]
  - TEMPOROMANDIBULAR JOINT SYNDROME [None]
  - UNDERDOSE [None]
